FAERS Safety Report 19295065 (Version 14)
Quarter: 2025Q1

REPORT INFORMATION
  Report Type: Spontaneous
  Country: US (occurrence: US)
  Receive Date: 20210524
  Receipt Date: 20250303
  Transmission Date: 20250409
  Serious: No
  Sender: PFIZER
  Company Number: US-PFIZER INC-2021537868

PATIENT
  Age: 67 Year
  Sex: Female
  Weight: 105.23 kg

DRUGS (6)
  1. TIKOSYN [Suspect]
     Active Substance: DOFETILIDE
     Indication: Atrial fibrillation
     Dosage: TAKE 2 CAPSULES (250 MCG TOTAL)
     Route: 048
     Dates: start: 20220513
  2. TIKOSYN [Suspect]
     Active Substance: DOFETILIDE
     Indication: Supraventricular tachyarrhythmia
  3. TIKOSYN [Suspect]
     Active Substance: DOFETILIDE
     Dosage: TAKE 2 CAPSULES (250 MCG TOTAL)
     Route: 048
     Dates: start: 20241112
  4. TIKOSYN [Suspect]
     Active Substance: DOFETILIDE
  5. WARFARIN [Concomitant]
     Active Substance: WARFARIN
     Indication: Atrial fibrillation
     Dosage: UNK, 1X/DAY (EVERY 2 WEEKS)
     Route: 048
  6. WARFARIN [Concomitant]
     Active Substance: WARFARIN
     Indication: Hypertension

REACTIONS (5)
  - Weight fluctuation [Unknown]
  - Disturbance in attention [Unknown]
  - Malaise [Unknown]
  - Osteoporosis [Unknown]
  - Product prescribing error [Unknown]
